FAERS Safety Report 13792669 (Version 2)
Quarter: 2017Q4

REPORT INFORMATION
  Report Type: Spontaneous
  Country: US (occurrence: US)
  Receive Date: 20170725
  Receipt Date: 20171026
  Transmission Date: 20180320
  Serious: No
  Sender: FDA-Public Use
  Company Number: US-TESARO, INC.-US-2017TSO00823

PATIENT

DRUGS (2)
  1. ZEJULA [Suspect]
     Active Substance: NIRAPARIB
     Indication: OVARIAN CANCER
     Dosage: 300 MG, QD
     Route: 048
     Dates: start: 20170601, end: 201706
  2. ZEJULA [Suspect]
     Active Substance: NIRAPARIB
     Indication: OVARIAN CANCER RECURRENT
     Dosage: 200 MG, QD (AT BEDTIME)
     Route: 048
     Dates: start: 201706

REACTIONS (17)
  - Asthenia [Not Recovered/Not Resolved]
  - Anaemia [Not Recovered/Not Resolved]
  - Back disorder [Not Recovered/Not Resolved]
  - Retching [Not Recovered/Not Resolved]
  - Decreased appetite [Not Recovered/Not Resolved]
  - Fatigue [Not Recovered/Not Resolved]
  - Pollakiuria [Not Recovered/Not Resolved]
  - Product size issue [Unknown]
  - Pain [Unknown]
  - Abdominal pain [Not Recovered/Not Resolved]
  - Discomfort [Unknown]
  - Pain in extremity [Not Recovered/Not Resolved]
  - Arthralgia [Not Recovered/Not Resolved]
  - Insomnia [Not Recovered/Not Resolved]
  - Back pain [Not Recovered/Not Resolved]
  - Drug ineffective [Unknown]
  - Vomiting [Recovered/Resolved]

NARRATIVE: CASE EVENT DATE: 201706
